FAERS Safety Report 4369240-4 (Version None)
Quarter: 2004Q2

REPORT INFORMATION
  Report Type: 
  Country: None (occurrence: None)
  Receive Date: 20040603
  Receipt Date: 20031119
  Transmission Date: 20050107
  Serious: Yes (Other)
  Sender: FDA-Public Use
  Company Number: US-GLAXOSMITHKLINE-A0440382A

PATIENT
  Age: 47 Year
  Sex: Male
  Weight: 90.9 kg

DRUGS (2)
  1. AUGMENTIN [Suspect]
     Indication: EPIGLOTTITIS
     Dosage: 2TAB TWICE PER DAY
     Route: 048
     Dates: start: 20030925, end: 20031027
  2. LIPITOR [Concomitant]
     Route: 048
     Dates: end: 20031027

REACTIONS (3)
  - CHOLESTASIS [None]
  - HEPATIC ENZYME INCREASED [None]
  - JAUNDICE [None]
